FAERS Safety Report 4578476-9 (Version None)
Quarter: 2005Q1

REPORT INFORMATION
  Report Type: 
  Country: None (occurrence: None)
  Receive Date: 20050211
  Receipt Date: 20050201
  Transmission Date: 20050727
  Serious: Yes (Other)
  Sender: FDA-Public Use
  Company Number: FR-JNJFOC-20050202482

PATIENT
  Age: 50 Year
  Sex: Male

DRUGS (1)
  1. RISPERDAL [Suspect]
     Route: 049

REACTIONS (1)
  - PARKINSON'S DISEASE [None]
